FAERS Safety Report 8117042-5 (Version None)
Quarter: 2012Q1

REPORT INFORMATION
  Report Type: 
  Country: None (occurrence: None)
  Receive Date: 20120206
  Receipt Date: 20120201
  Transmission Date: 20120608
  Serious: Yes (Death, Hospitalization)
  Sender: FDA-Public Use
  Company Number: KR-PFIZER INC-2012026852

PATIENT
  Age: 57 Year
  Sex: Male
  Weight: 42.45 kg

DRUGS (11)
  1. AXITINIB [Suspect]
     Indication: HEPATIC NEOPLASM MALIGNANT
     Dosage: 3 MG, 2X/DAY
     Route: 048
     Dates: start: 20111207, end: 20120115
  2. RANITIDINE HYDROCHLORIDE [Concomitant]
     Indication: PROPHYLAXIS
     Dosage: UNK
     Dates: start: 20111229, end: 20120103
  3. PROPRANOLOL [Concomitant]
     Indication: HYPOTHYROIDISM
     Dosage: UNK
     Dates: start: 20120109
  4. LACTOBACILLUS ACIDOPHILUS/LACTOBACILLUS RHAMNOSUS [Concomitant]
     Indication: PROPHYLAXIS
     Dosage: UNK
     Dates: start: 20111229, end: 20120103
  5. CIPROFLOXACIN HYDROCHLORIDE [Concomitant]
     Indication: PROPHYLAXIS
     Dosage: UNK
     Dates: start: 20111219, end: 20120103
  6. BETAXOLOL [Concomitant]
     Indication: HYPOTHYROIDISM
     Dosage: UNK
     Dates: start: 20120105
  7. HYDROMORPHONE HYDROCHLORIDE [Concomitant]
     Indication: ABDOMINAL PAIN
     Dosage: UNK
     Dates: start: 20111221
  8. FENTANYL [Concomitant]
     Indication: ABDOMINAL PAIN
     Dosage: UNK
     Dates: start: 20111222
  9. ENTECAVIR [Concomitant]
     Indication: HEPATITIS B
     Dosage: UNK
     Route: 048
     Dates: start: 20111218
  10. TRIMEBUTINE MALEATE [Concomitant]
     Indication: PROPHYLAXIS
     Dosage: UNK
     Dates: start: 20111229, end: 20120103
  11. MEGESTROL [Concomitant]
     Indication: DECREASED APPETITE
     Dosage: UNK
     Dates: start: 20120105

REACTIONS (1)
  - HEPATIC FAILURE [None]
